FAERS Safety Report 7092127-3 (Version None)
Quarter: 2010Q4

REPORT INFORMATION
  Report Type: 
  Country: None (occurrence: None)
  Receive Date: 20101101
  Receipt Date: 20101015
  Transmission Date: 20110411
  Serious: Yes (Hospitalization, Other)
  Sender: FDA-Public Use
  Company Number: 020413

PATIENT
  Sex: Female
  Weight: 126.4 kg

DRUGS (7)
  1. CERTOLIZUMAB PEGOL [Suspect]
     Indication: RHEUMATOID ARTHRITIS
     Dosage: 9400 MG 1X/2 WEEKS SUBCUTANEOUS0
     Route: 058
     Dates: start: 20100101, end: 20100916
  2. METHOTREXATE [Concomitant]
  3. DAYPRO [Concomitant]
  4. FOLIC ACID [Concomitant]
  5. METFORMIN HCL [Concomitant]
  6. GLIMEPIRIDE [Concomitant]
  7. SKELAXIN [Concomitant]

REACTIONS (7)
  - ACUTE RESPIRATORY FAILURE [None]
  - BLOOD ALBUMIN DECREASED [None]
  - BLOOD CALCIUM DECREASED [None]
  - BLOOD GLUCOSE INCREASED [None]
  - BLOOD SODIUM DECREASED [None]
  - PNEUMONIA [None]
  - RESPIRATORY ALKALOSIS [None]
